FAERS Safety Report 11781020 (Version 1)
Quarter: 2015Q4

REPORT INFORMATION
  Report Type: Report from Study
  Country: BR (occurrence: BR)
  Receive Date: 20151126
  Receipt Date: 20151126
  Transmission Date: 20160305
  Serious: Yes (Other)
  Sender: FDA-Public Use
  Company Number: BR-ROCHE-1475254

PATIENT
  Sex: Female
  Weight: 57 kg

DRUGS (8)
  1. MABTHERA [Suspect]
     Active Substance: RITUXIMAB
     Route: 042
     Dates: start: 20140530
  2. FOLIC ACID. [Concomitant]
     Active Substance: FOLIC ACID
  3. PREDNISONE. [Concomitant]
     Active Substance: PREDNISONE
  4. MABTHERA [Suspect]
     Active Substance: RITUXIMAB
     Indication: RHEUMATOID ARTHRITIS
     Route: 042
     Dates: start: 20140514
  5. LOSARTAN. [Concomitant]
     Active Substance: LOSARTAN
  6. METHOTREXATE [Concomitant]
     Active Substance: METHOTREXATE
  7. ATENOLOL. [Concomitant]
     Active Substance: ATENOLOL
  8. GLIFAGE [Concomitant]
     Active Substance: METFORMIN HYDROCHLORIDE

REACTIONS (6)
  - Gait disturbance [Not Recovered/Not Resolved]
  - Nail disorder [Recovering/Resolving]
  - Chondropathy [Not Recovered/Not Resolved]
  - Arthropathy [Unknown]
  - Joint swelling [Not Recovered/Not Resolved]
  - Arthralgia [Not Recovered/Not Resolved]
